FAERS Safety Report 12167172 (Version 1)
Quarter: 2016Q1

REPORT INFORMATION
  Report Type: Spontaneous
  Country: US (occurrence: None)
  Receive Date: 20160309
  Receipt Date: 20160309
  Transmission Date: 20160526
  Serious: Yes (Disabling, Other)
  Sender: FDA-Public Use
  Company Number: None

PATIENT
  Age: 71 Year
  Sex: Female
  Weight: 72.58 kg

DRUGS (7)
  1. VITAMIN D [Concomitant]
     Active Substance: CHOLECALCIFEROL
  2. MAGNESIUM [Concomitant]
     Active Substance: MAGNESIUM
  3. SYNTHROID [Concomitant]
     Active Substance: LEVOTHYROXINE SODIUM
  4. EPA-3 [Concomitant]
  5. LEVOFLOXACIN 500 MG DR. REDDY^S LAB [Suspect]
     Active Substance: LEVOFLOXACIN
     Indication: ORAL SURGERY
     Route: 048
     Dates: start: 20140814, end: 20140818
  6. CIPRO [Suspect]
     Active Substance: CIPROFLOXACIN HYDROCHLORIDE
     Indication: ORAL SURGERY
     Dates: start: 20121230, end: 20130103
  7. CALCIUM [Concomitant]
     Active Substance: CALCIUM

REACTIONS (6)
  - Musculoskeletal pain [None]
  - Tendon rupture [None]
  - Sinus disorder [None]
  - Tendon pain [None]
  - Gastrointestinal disorder [None]
  - Back pain [None]

NARRATIVE: CASE EVENT DATE: 20150301
